FAERS Safety Report 21821936 (Version 1)
Quarter: 2023Q1

REPORT INFORMATION
  Report Type: Spontaneous
  Country: US (occurrence: None)
  Receive Date: 20230104
  Receipt Date: 20230104
  Transmission Date: 20230417
  Serious: No
  Sender: FDA-Public Use
  Company Number: None

PATIENT
  Age: 50 Year
  Sex: Female
  Weight: 78.47 kg

DRUGS (1)
  1. SYNTHROID [Suspect]
     Active Substance: LEVOTHYROXINE SODIUM
     Indication: Hypothyroidism
     Dosage: 125 MCG 1/2 DAILY ORAL?
     Route: 048
     Dates: start: 20111227, end: 20111229

REACTIONS (2)
  - Tremor [None]
  - Feeling jittery [None]

NARRATIVE: CASE EVENT DATE: 20111227
